FAERS Safety Report 12334672 (Version 4)
Quarter: 2017Q3

REPORT INFORMATION
  Report Type: Report from Study
  Country: US (occurrence: US)
  Receive Date: 20160504
  Receipt Date: 20170911
  Transmission Date: 20171127
  Serious: Yes (Death)
  Sender: FDA-Public Use
  Company Number: US-CELGENEUS-USA-2016046266

PATIENT
  Age: 77 Year
  Sex: Male
  Weight: 101.06 kg

DRUGS (32)
  1. KYPROLIS [Suspect]
     Active Substance: CARFILZOMIB
     Indication: PLASMA CELL MYELOMA
     Dosage: 56 MILLIGRAM
     Route: 041
     Dates: start: 20131202, end: 20140407
  2. ACETAMINOPHEN [Concomitant]
     Indication: PAIN
  3. HALOPERIDOL [Concomitant]
     Indication: RESTLESSNESS
     Dosage: 0.25-0MG
     Route: 048
     Dates: start: 20140427
  4. IBUPROFEN [Concomitant]
     Indication: PYREXIA
     Dosage: 1600 MILLIGRAM
     Route: 048
     Dates: start: 20140419
  5. NEURONTIN [Concomitant]
     Indication: PAIN
     Dosage: 300 MILLIGRAM
     Route: 048
     Dates: start: 20140419
  6. SENNA-S [Concomitant]
     Active Substance: DOCUSATE SODIUM\SENNOSIDES
     Indication: GASTROINTESTINAL DISORDER
     Dosage: 8.6-50MG
     Route: 048
     Dates: start: 20140419
  7. POMALYST [Suspect]
     Active Substance: POMALIDOMIDE
     Indication: PLASMA CELL MYELOMA
     Dosage: 4 MILLIGRAM
     Route: 048
     Dates: start: 20131114, end: 20131126
  8. KLOR-CON [Concomitant]
     Active Substance: POTASSIUM CHLORIDE
     Indication: SUPPLEMENTATION THERAPY
     Dosage: 20 MILLIEQUIVALENTS
     Route: 048
     Dates: start: 20140419
  9. LIDODERM [Concomitant]
     Indication: PAIN
     Dosage: 5 PERCENT
     Route: 065
     Dates: start: 20140419
  10. ATROPINE. [Concomitant]
     Active Substance: ATROPINE
     Indication: PRODUCT USED FOR UNKNOWN INDICATION
     Route: 065
     Dates: start: 20140426
  11. DEXAMETHASONE [Concomitant]
     Indication: PAIN
  12. METOLAZONE [Concomitant]
     Indication: OEDEMA
     Dosage: 2.5 MILLIGRAM
     Route: 048
     Dates: start: 20140419
  13. LEVOTHYROXINE [Concomitant]
     Indication: THYROID DISORDER
     Dosage: 175 MICROGRAM
     Route: 048
     Dates: start: 20140419
  14. MORPHINE [Concomitant]
     Active Substance: MORPHINE
     Indication: BREAKTHROUGH PAIN
  15. PROTONIX [Concomitant]
     Indication: GASTROINTESTINAL DISORDER
     Dosage: 40 MILLIGRAM
     Route: 048
     Dates: start: 20140419
  16. COREG [Concomitant]
     Indication: CARDIAC DISORDER
     Dosage: 6.25 MILLIGRAM
     Route: 048
     Dates: start: 20140419
  17. SCOPOLAMINE [Concomitant]
     Active Substance: SCOPOLAMINE
     Indication: PRODUCT USED FOR UNKNOWN INDICATION
     Dosage: .5 MILLIGRAM
     Route: 061
     Dates: start: 20140427
  18. CYTOXAN [Suspect]
     Active Substance: CYCLOPHOSPHAMIDE
     Indication: PLASMA CELL MYELOMA
     Dosage: 500 MILLIGRAM
     Route: 048
     Dates: start: 20131202, end: 20140407
  19. ACETAMINOPHEN [Concomitant]
     Indication: PYREXIA
     Route: 048
     Dates: start: 20140419
  20. LANTUS SOLOSTAR [Concomitant]
     Active Substance: INSULIN GLARGINE
     Indication: DIABETES MELLITUS
     Dosage: 40 IU (INTERNATIONAL UNIT)
     Route: 058
     Dates: start: 20140419
  21. MAGNESIUM OXIDE [Concomitant]
     Indication: SUPPLEMENTATION THERAPY
     Dosage: 400 MILLIGRAM
     Route: 048
     Dates: start: 20140419
  22. MORPHINE [Concomitant]
     Active Substance: MORPHINE
     Indication: PAIN
     Dosage: 90 MILLIGRAM
     Route: 048
     Dates: start: 20140419
  23. TAMSULOSIN [Concomitant]
     Active Substance: TAMSULOSIN
     Indication: BENIGN PROSTATIC HYPERPLASIA
     Dosage: .4 MILLIGRAM
     Route: 048
     Dates: start: 20140419
  24. REVLIMID [Suspect]
     Active Substance: LENALIDOMIDE
     Indication: PLASMA CELL MYELOMA
     Dosage: 25 MILLIGRAM
     Route: 048
     Dates: start: 20101014, end: 20110316
  25. REVLIMID [Suspect]
     Active Substance: LENALIDOMIDE
     Dosage: 10 MILLIGRAM
     Route: 048
     Dates: start: 20120918, end: 20131113
  26. DECADRON [Suspect]
     Active Substance: DEXAMETHASONE
     Indication: PLASMA CELL MYELOMA
     Dosage: 4 GRAM
     Route: 041
     Dates: start: 20131202, end: 20140407
  27. DEXAMETHASONE [Concomitant]
     Indication: APPETITE DISORDER
     Dosage: 4 MILLIGRAM
     Route: 048
     Dates: start: 20140419
  28. NEURONTIN [Concomitant]
     Indication: BREAKTHROUGH PAIN
     Dosage: 800 MILLIGRAM
     Route: 048
     Dates: start: 20140419
  29. XANAX [Concomitant]
     Indication: ANXIETY
     Dosage: 1.5 MILLIGRAM
     Route: 048
     Dates: start: 20140419
  30. CIPRODEX [Concomitant]
     Active Substance: CIPROFLOXACIN HYDROCHLORIDE\DEXAMETHASONE
     Indication: EXCESSIVE CERUMEN PRODUCTION
     Dosage: 0.3-0.1%
     Route: 065
     Dates: start: 20140419
  31. CYCLOBENZAPRINE [Concomitant]
     Indication: MUSCLE SPASMS
     Dosage: 10 MILLIGRAM
     Route: 048
     Dates: start: 20140419
  32. LASIX [Concomitant]
     Indication: OEDEMA
     Dosage: 40 MILLIGRAM
     Route: 048
     Dates: start: 20140419

REACTIONS (1)
  - Plasma cell myeloma [Fatal]

NARRATIVE: CASE EVENT DATE: 20140427
